FAERS Safety Report 23813683 (Version 1)
Quarter: 2024Q2

REPORT INFORMATION
  Report Type: Spontaneous
  Country: US (occurrence: None)
  Receive Date: 20240502
  Receipt Date: 20240502
  Transmission Date: 20240716
  Serious: Yes (Hospitalization)
  Sender: FDA-Public Use
  Company Number: None

PATIENT
  Sex: Female

DRUGS (11)
  1. DIMETHYL FUMARATE [Suspect]
     Active Substance: DIMETHYL FUMARATE
     Indication: Multiple sclerosis
     Dosage: FREQUENCY : TAKE 1 CAPSULE (240 MG) BY MOUTH TWICE DAILY
     Route: 048
     Dates: start: 20230111
  2. BANOPHEN [Concomitant]
     Active Substance: DIPHENHYDRAMINE HYDROCHLORIDE
  3. BENZTROPINE [Concomitant]
     Active Substance: BENZTROPINE
  4. BUSPIRONE [Concomitant]
     Active Substance: BUSPIRONE HYDROCHLORIDE
  5. CETIRIZINE HCL [Concomitant]
     Active Substance: CETIRIZINE HYDROCHLORIDE
  6. CITALOPRAM [Concomitant]
     Active Substance: CITALOPRAM\CITALOPRAM HYDROBROMIDE
  7. CLONIDINE [Concomitant]
     Active Substance: CLONIDINE
  8. D3-1000 [Concomitant]
  9. DONEPEZIL [Concomitant]
     Active Substance: DONEPEZIL\DONEPEZIL HYDROCHLORIDE
  10. EMGALITY [Concomitant]
     Active Substance: GALCANEZUMAB-GNLM
  11. FLUTICASONE SPR [Concomitant]

REACTIONS (2)
  - Platelet count decreased [None]
  - Hypersensitivity [None]
